FAERS Safety Report 21009036 (Version 1)
Quarter: 2022Q2

REPORT INFORMATION
  Report Type: Spontaneous
  Country: US (occurrence: US)
  Receive Date: 20220627
  Receipt Date: 20220627
  Transmission Date: 20220721
  Serious: Yes (Life-Threatening, Hospitalization)
  Sender: FDA-Public Use
  Company Number: US-drreddys-LIT/USA/22/0151673

PATIENT
  Age: 79 Year
  Sex: Female

DRUGS (4)
  1. GEMCITABINE [Suspect]
     Active Substance: GEMCITABINE
     Indication: Metastatic squamous cell carcinoma
     Dosage: COMPLETED IN 5 MONTHS
  2. ERLOTINIB [Suspect]
     Active Substance: ERLOTINIB
     Indication: Metastatic squamous cell carcinoma
     Dosage: SECOND-LINE THERAPY
  3. CARBOPLATIN [Suspect]
     Active Substance: CARBOPLATIN
     Indication: Neuroendocrine carcinoma
     Dosage: COMPLETED IN 5 MONTHS
  4. CARBOPLATIN [Suspect]
     Active Substance: CARBOPLATIN
     Indication: Neuroendocrine carcinoma
     Dosage: RECEIVING THE FOURTH-LINE CHEMOTHERAPY IN 2 MONTHS

REACTIONS (2)
  - Drug ineffective [Unknown]
  - Disease progression [Unknown]
